FAERS Safety Report 18696205 (Version 2)
Quarter: 2021Q1

REPORT INFORMATION
  Report Type: Spontaneous
  Country: US (occurrence: US)
  Receive Date: 20210104
  Receipt Date: 20210302
  Transmission Date: 20210419
  Serious: Yes (Hospitalization)
  Sender: FDA-Public Use
  Company Number: US-ELI_LILLY_AND_COMPANY-US202012012923

PATIENT
  Age: 79 Year
  Sex: Male
  Weight: 111.1 kg

DRUGS (1)
  1. BAMLANIVIMAB 700MG [Suspect]
     Active Substance: BAMLANIVIMAB
     Indication: COVID-19
     Dosage: 700 MG, SINGLE
     Route: 042
     Dates: start: 20201203, end: 20201203

REACTIONS (11)
  - Dehydration [Unknown]
  - Hyperhidrosis [Recovered/Resolved]
  - Chest pain [Recovered/Resolved]
  - Malaise [Unknown]
  - Electrocardiogram QT prolonged [Unknown]
  - Fluid intake reduced [Unknown]
  - Pyrexia [Unknown]
  - Decreased appetite [Unknown]
  - Brain natriuretic peptide increased [Unknown]
  - Hypotension [Recovered/Resolved]
  - Diarrhoea [Unknown]

NARRATIVE: CASE EVENT DATE: 202012
